FAERS Safety Report 25910203 (Version 1)
Quarter: 2025Q4

REPORT INFORMATION
  Report Type: Report from Study
  Country: EU (occurrence: EU)
  Receive Date: 20251012
  Receipt Date: 20251012
  Transmission Date: 20260118
  Serious: Yes (Hospitalization)
  Sender: ROCHE
  Company Number: EU-ROCHE-10000409200

PATIENT
  Age: 51 Year
  Sex: Male
  Weight: 50 kg

DRUGS (6)
  1. EVRYSDI [Suspect]
     Active Substance: RISDIPLAM
     Indication: Spinal muscular atrophy
     Route: 048
     Dates: start: 20200924
  2. APIXABAN [Concomitant]
     Active Substance: APIXABAN
  3. ENOXAPARIN [Concomitant]
     Active Substance: ENOXAPARIN
  4. METAMIZOLE SODIUM [Concomitant]
     Active Substance: METAMIZOLE SODIUM
  5. CEFUROXIME [Concomitant]
     Active Substance: CEFUROXIME
     Dates: start: 20201214, end: 20201224
  6. METRONIDAZOLE [Concomitant]
     Active Substance: METRONIDAZOLE
     Dates: start: 20201214, end: 20201224

REACTIONS (1)
  - Intestinal perforation [Recovered/Resolved]

NARRATIVE: CASE EVENT DATE: 20201214
